FAERS Safety Report 23191087 (Version 6)
Quarter: 2024Q4

REPORT INFORMATION
  Report Type: Report from Study
  Country: NL (occurrence: NL)
  Receive Date: 20231116
  Receipt Date: 20241001
  Transmission Date: 20250114
  Serious: Yes (Hospitalization, Other)
  Sender: ABBVIE
  Company Number: NL-ABBVIE-5493412

PATIENT
  Age: 71 Year
  Sex: Male
  Weight: 86 kg

DRUGS (14)
  1. CARBIDOPA\LEVODOPA [Suspect]
     Active Substance: CARBIDOPA\LEVODOPA
     Indication: Parkinson^s disease
     Dosage: MD: 9.0ML, CD: 4.3ML/H, ED: 3.5ML?DURATION TEXT: REMAINS AT 16 HOURS
     Route: 050
     Dates: start: 20240502, end: 20240923
  2. CARBIDOPA\LEVODOPA [Suspect]
     Active Substance: CARBIDOPA\LEVODOPA
     Dosage: MD: 9.0ML, CD: 4.3ML/H, ED: 3.5ML?REMAINS AT 16 HOURS
     Route: 050
     Dates: start: 20240923
  3. CARBIDOPA\LEVODOPA [Suspect]
     Active Substance: CARBIDOPA\LEVODOPA
     Dosage: DURATION: REMAINS AT 16 HOURS
     Route: 050
     Dates: start: 20221003
  4. CARBIDOPA\LEVODOPA [Suspect]
     Active Substance: CARBIDOPA\LEVODOPA
     Dosage: MD: 10.0ML, CD: 4.5ML/H, ED: 3.0ML?DURATION TEXT: REMAINS AT 16 HOURS
     Route: 050
     Dates: start: 20230314, end: 20230330
  5. CARBIDOPA\LEVODOPA [Suspect]
     Active Substance: CARBIDOPA\LEVODOPA
     Dosage: MD: 11.0ML, CD: 4.5ML/H, ED: 5.0ML?DURATION TEXT: REMAINS AT 16 HOURS
     Route: 050
     Dates: start: 20230117, end: 20230206
  6. CARBIDOPA\LEVODOPA [Suspect]
     Active Substance: CARBIDOPA\LEVODOPA
     Dosage: MD: 9.0ML, CD: 4.4ML/H, ED: 3.5ML?DURATION TEXT: REMAINS AT 16 HOURS
     Route: 050
     Dates: start: 20230330, end: 20230712
  7. CARBIDOPA\LEVODOPA [Suspect]
     Active Substance: CARBIDOPA\LEVODOPA
     Dosage: MD: 9.0ML, CD: 4.4ML/H, ED: 3.5ML?REMAINS AT 16 HOURS
     Route: 050
     Dates: start: 20230712, end: 20231213
  8. CARBIDOPA\LEVODOPA [Suspect]
     Active Substance: CARBIDOPA\LEVODOPA
     Dosage: MD: 11.0ML, CD: 4.5ML/H, ED: 5.0ML?DURATION TEXT: REMAINS AT 16 HOURS
     Route: 050
     Dates: start: 20230206, end: 20230215
  9. CARBIDOPA\LEVODOPA [Suspect]
     Active Substance: CARBIDOPA\LEVODOPA
     Dosage: MD: 9.0ML, CD: 4.3ML/H, ED: 3.5ML?DURATION TEXT: REMAINS AT 16 HOURS
     Route: 050
     Dates: start: 20231213, end: 20240502
  10. CARBIDOPA\LEVODOPA [Suspect]
     Active Substance: CARBIDOPA\LEVODOPA
     Dosage: MD: 11.0ML, CD: 4.5ML/H, ED: 5.0ML?DURATION TEXT: REMAINS AT 16 HOURS
     Route: 050
     Dates: start: 20230215, end: 20230314
  11. CARBIDOPA\LEVODOPA [Suspect]
     Active Substance: CARBIDOPA\LEVODOPA
     Dosage: MD: 9.0ML, CD: 4.3ML/H, ED: 3.5ML?REMAINS AT 16 HOURS
     Route: 050
  12. CARBIDOPA\LEVODOPA [Suspect]
     Active Substance: CARBIDOPA\LEVODOPA
     Dosage: REMAINS AT 16 HOURS
     Route: 050
  13. MOVICOLON [Concomitant]
     Active Substance: POLYETHYLENE GLYCOL 3350\POTASSIUM CHLORIDE\SODIUM BICARBONATE\SODIUM CHLORIDE
     Indication: Bowel movement irregularity
  14. TAMSULOSIN [Concomitant]
     Active Substance: TAMSULOSIN
     Indication: Micturition disorder

REACTIONS (28)
  - Hip fracture [Recovered/Resolved]
  - Fall [Not Recovered/Not Resolved]
  - Listless [Not Recovered/Not Resolved]
  - Hyperventilation [Not Recovered/Not Resolved]
  - Unevaluable event [Unknown]
  - Tremor [Not Recovered/Not Resolved]
  - On and off phenomenon [Not Recovered/Not Resolved]
  - Nocturia [Not Recovered/Not Resolved]
  - Reduced facial expression [Not Recovered/Not Resolved]
  - Hyperhidrosis [Not Recovered/Not Resolved]
  - Therapeutic product effect incomplete [Not Recovered/Not Resolved]
  - Poor quality sleep [Not Recovered/Not Resolved]
  - Lethargy [Not Recovered/Not Resolved]
  - Product dose omission in error [Not Recovered/Not Resolved]
  - Osteoarthritis [Not Recovered/Not Resolved]
  - Blood pressure systolic increased [Not Recovered/Not Resolved]
  - Dyskinesia [Recovering/Resolving]
  - Weight abnormal [Recovering/Resolving]
  - Pallor [Not Recovered/Not Resolved]
  - General physical health deterioration [Not Recovered/Not Resolved]
  - Heart valve replacement [Unknown]
  - Pain [Recovering/Resolving]
  - Underdose [Not Recovered/Not Resolved]
  - Stoma complication [Not Recovered/Not Resolved]
  - Gait disturbance [Not Recovered/Not Resolved]
  - Fatigue [Not Recovered/Not Resolved]
  - Insomnia [Not Recovered/Not Resolved]
  - Dizziness [Not Recovered/Not Resolved]

NARRATIVE: CASE EVENT DATE: 20230101
